FAERS Safety Report 9383672 (Version 1)
Quarter: 2013Q3

REPORT INFORMATION
  Report Type: Report from Study
  Country: CA (occurrence: CA)
  Receive Date: 20130704
  Receipt Date: 20130704
  Transmission Date: 20140515
  Serious: Yes (Other)
  Sender: FDA-Public Use
  Company Number: CA-JNJFOC-20130619858

PATIENT
  Age: 38 Year
  Sex: Female
  Weight: 109.77 kg

DRUGS (4)
  1. REMICADE [Suspect]
     Indication: CROHN^S DISEASE
     Route: 042
     Dates: end: 201107
  2. REMICADE [Suspect]
     Indication: ANKYLOSING SPONDYLITIS
     Route: 042
     Dates: end: 201107
  3. FENTANYL [Concomitant]
     Indication: PAIN
     Route: 065
  4. DILAUDID [Concomitant]
     Indication: PAIN
     Route: 065

REACTIONS (4)
  - Post procedural infection [Unknown]
  - Crohn^s disease [Unknown]
  - Abdominal hernia [Unknown]
  - Impaired healing [Unknown]
